FAERS Safety Report 22102639 (Version 1)
Quarter: 2023Q1

REPORT INFORMATION
  Report Type: Report from Study
  Country: US (occurrence: None)
  Receive Date: 20230316
  Receipt Date: 20230316
  Transmission Date: 20230417
  Serious: Yes (Hospitalization, Other)
  Sender: FDA-Public Use
  Company Number: 2023A059518

PATIENT
  Sex: Male

DRUGS (3)
  1. LYNPARZA [Suspect]
     Active Substance: OLAPARIB
     Indication: Metastases to central nervous system
     Route: 048
     Dates: start: 202211
  2. LYNPARZA [Suspect]
     Active Substance: OLAPARIB
     Indication: Metastases to lung
     Route: 048
     Dates: start: 202211
  3. LYNPARZA [Suspect]
     Active Substance: OLAPARIB
     Indication: Malignant melanoma
     Route: 048
     Dates: start: 202211

REACTIONS (2)
  - Renal failure [Unknown]
  - Off label use [Unknown]
